FAERS Safety Report 5966152-7 (Version None)
Quarter: 2008Q4

REPORT INFORMATION
  Report Type: 
  Country: None (occurrence: None)
  Receive Date: 20081125
  Receipt Date: 20081113
  Transmission Date: 20090506
  Serious: Yes (Hospitalization)
  Sender: FDA-Public Use
  Company Number: SE-ROCHE-583372

PATIENT
  Age: 53 Year
  Sex: Male

DRUGS (9)
  1. CELLCEPT [Suspect]
     Dosage: FORM REPORTED AS CAPSULE, HARD
     Route: 065
     Dates: start: 20040401
  2. CELLCEPT [Suspect]
     Dosage: LOWER DOSAGE
     Route: 065
     Dates: start: 20070101, end: 20070926
  3. SELOKEN [Concomitant]
     Dosage: DRUG NAME REPORTED: SELOKEN ZOC, REPORTED: PROL REL TABL
  4. ZYLORIC [Concomitant]
  5. PREDNISOLONE [Concomitant]
  6. NATRIUMBIKARBONAT [Concomitant]
  7. KALIUM RETARD [Concomitant]
     Dosage: REPORTED: PROL REL TABL
  8. FUROSEMID [Concomitant]
  9. CAPTOPRIL [Concomitant]

REACTIONS (3)
  - LEUKOPENIA [None]
  - LYMPHOPENIA [None]
  - VIRAL INFECTION [None]
